FAERS Safety Report 14072984 (Version 1)
Quarter: 2017Q4

REPORT INFORMATION
  Report Type: Spontaneous
  Country: US (occurrence: US)
  Receive Date: 20171011
  Receipt Date: 20171011
  Transmission Date: 20180321
  Serious: Yes (Death, Other)
  Sender: FDA-Public Use
  Company Number: US-CELGENEUS-USA-20171001708

PATIENT
  Age: 67 Year
  Sex: Male

DRUGS (2)
  1. VIDAZA [Suspect]
     Active Substance: AZACITIDINE
     Indication: CHRONIC MYELOMONOCYTIC LEUKAEMIA
     Route: 065
  2. CLOFARABINE. [Concomitant]
     Active Substance: CLOFARABINE
     Indication: PRODUCT USED FOR UNKNOWN INDICATION
     Route: 065

REACTIONS (11)
  - Skin mass [Unknown]
  - Chronic myelomonocytic leukaemia [Fatal]
  - Skin lesion [Unknown]
  - Splenomegaly [Unknown]
  - Lymphadenopathy [Unknown]
  - Dyspnoea [Unknown]
  - Abdominal pain [Unknown]
  - Nodule [Unknown]
  - Hypermetabolism [Unknown]
  - Pancytopenia [Unknown]
  - Rash papular [Unknown]
